FAERS Safety Report 6386556-0 (Version None)
Quarter: 2009Q4

REPORT INFORMATION
  Report Type: 
  Country: None (occurrence: None)
  Receive Date: 20091002
  Receipt Date: 20090326
  Transmission Date: 20100525
  Serious: No
  Sender: FDA-Public Use
  Company Number: US-ASTRAZENECA-2009UW07776

PATIENT
  Age: 78 Year
  Sex: Female
  Weight: 72.6 kg

DRUGS (7)
  1. ARIMIDEX [Suspect]
     Indication: BREAST CANCER
     Route: 048
  2. ATACAND HCT [Suspect]
     Route: 048
  3. ATACAND HCT [Suspect]
     Route: 048
  4. CALCIUM [Concomitant]
  5. CENTRUM [Concomitant]
  6. ASPIRIN [Concomitant]
  7. LOVAZA [Concomitant]

REACTIONS (2)
  - MYALGIA [None]
  - TINNITUS [None]
